FAERS Safety Report 4290064-0 (Version None)
Quarter: 2004Q1

REPORT INFORMATION
  Report Type: 
  Country: None (occurrence: None)
  Receive Date: 20040209
  Receipt Date: 20031001
  Transmission Date: 20041129
  Serious: Yes (Hospitalization, Other)
  Sender: FDA-Public Use
  Company Number: USA030946309

PATIENT
  Age: 92 Year
  Sex: Female
  Weight: 70 kg

DRUGS (1)
  1. EVISTA [Suspect]
     Indication: OSTEOPOROSIS
     Dosage: 60 MG/DAY
     Dates: start: 20030723, end: 20030827

REACTIONS (1)
  - DEEP VEIN THROMBOSIS [None]
